FAERS Safety Report 17975413 (Version 1)
Quarter: 2020Q3

REPORT INFORMATION
  Report Type: Report from Study
  Country: US (occurrence: US)
  Receive Date: 20200702
  Receipt Date: 20200702
  Transmission Date: 20201103
  Serious: Yes (Hospitalization)
  Sender: FDA-Public Use
  Company Number: NVSC2020US182280

PATIENT
  Age: 40 Year
  Sex: Female

DRUGS (1)
  1. GILENYA [Suspect]
     Active Substance: FINGOLIMOD HYDROCHLORIDE
     Indication: MULTIPLE SCLEROSIS
     Dosage: 0.5 MG, QD
     Route: 048
     Dates: start: 20200625, end: 20200625

REACTIONS (5)
  - Arthralgia [Unknown]
  - Somnolence [Unknown]
  - Blood pressure abnormal [Unknown]
  - Dizziness [Unknown]
  - Bradycardia [Unknown]

NARRATIVE: CASE EVENT DATE: 20200625
